FAERS Safety Report 8481688-5 (Version None)
Quarter: 2012Q3

REPORT INFORMATION
  Report Type: 
  Country: None (occurrence: None)
  Receive Date: 20120702
  Receipt Date: 20120623
  Transmission Date: 20120928
  Serious: Yes (Hospitalization)
  Sender: FDA-Public Use
  Company Number: US-ROCHE-1081582

PATIENT
  Age: 66 Year
  Sex: Female
  Weight: 75 kg

DRUGS (3)
  1. AVASTIN [Suspect]
     Indication: OVARIAN EPITHELIAL CANCER
     Dosage: LATEST RECEIVED DATE:08/MAR/2012
     Dates: start: 20120216
  2. CARBOPLATIN [Suspect]
     Indication: OVARIAN EPITHELIAL CANCER
     Dosage: LATEST RECEIVED DATE: 22/MAY/2012
  3. PACLITAXEL [Suspect]
     Indication: OVARIAN EPITHELIAL CANCER
     Dosage: LATEST RECEIVED DATE: 22/MAY/2012

REACTIONS (5)
  - VOMITING [None]
  - PYREXIA [None]
  - DIARRHOEA [None]
  - NAUSEA [None]
  - ANAEMIA [None]
